FAERS Safety Report 10031001 (Version 1)
Quarter: 2014Q1

REPORT INFORMATION
  Report Type: Report from Study
  Country: AU (occurrence: AU)
  Receive Date: 20140324
  Receipt Date: 20140324
  Transmission Date: 20141002
  Serious: Yes (Life-Threatening)
  Sender: FDA-Public Use
  Company Number: AU-ROCHE-1366679

PATIENT
  Age: 34 Year
  Sex: Female
  Weight: 103.1 kg

DRUGS (2)
  1. OMALIZUMAB [Suspect]
     Indication: PRODUCT USED FOR UNKNOWN INDICATION
     Route: 058
     Dates: start: 20140224
  2. OMALIZUMAB [Suspect]
     Route: 058
     Dates: start: 20140310, end: 20140310

REACTIONS (8)
  - Throat tightness [Recovered/Resolved]
  - Lip disorder [Recovered/Resolved]
  - Blood pressure decreased [Recovered/Resolved]
  - Heart rate decreased [Recovered/Resolved]
  - Forced expiratory volume decreased [Recovered/Resolved]
  - Fatigue [Recovered/Resolved]
  - Somnolence [Recovered/Resolved]
  - Headache [Recovered/Resolved]
